FAERS Safety Report 5125474-2 (Version None)
Quarter: 2006Q3

REPORT INFORMATION
  Report Type: 
  Country: None (occurrence: None)
  Receive Date: 20060822
  Receipt Date: 20060705
  Transmission Date: 20061208
  Serious: No
  Sender: FDA-Public Use
  Company Number: PHEH2006US08578

PATIENT
  Age: 45 Year
  Sex: Female

DRUGS (3)
  1. ENABLEX [Suspect]
     Indication: HYPERTONIC BLADDER
     Dosage: 7.5 MG, QD
     Dates: start: 20060601
  2. LIPITOR [Concomitant]
  3. PROTONIX [Concomitant]

REACTIONS (2)
  - DYSPNOEA [None]
  - HEART RATE INCREASED [None]
